APPROVED DRUG PRODUCT: ZEMDRI
Active Ingredient: PLAZOMICIN SULFATE
Strength: EQ 500MG BASE/10ML (EQ 50MG BASE/ML)
Dosage Form/Route: SOLUTION;INTRAVENOUS
Application: N210303 | Product #001
Applicant: CIPLA USA INC
Approved: Jun 25, 2018 | RLD: Yes | RS: Yes | Type: RX

PATENTS:
Patent 9688711 | Expires: Nov 21, 2028
Patent 9266919 | Expires: Nov 21, 2028
Patent 8383596 | Expires: Jun 25, 2032
Patent 8822424 | Expires: Nov 21, 2028

EXCLUSIVITY:
Code: NCE | Date: Jun 25, 2023
Code: GAIN | Date: Jun 25, 2028